FAERS Safety Report 8034270-8 (Version None)
Quarter: 2011Q4

REPORT INFORMATION
  Report Type: 
  Country: None (occurrence: None)
  Receive Date: 20111202
  Receipt Date: 20110727
  Transmission Date: 20120403
  Serious: Yes (Disabling)
  Sender: FDA-Public Use
  Company Number: WAES 1107USA03588

PATIENT
  Sex: Female

DRUGS (6)
  1. ACTONEL [Suspect]
     Indication: OSTEOPENIA
     Dosage: UNK/UNK/UNK
  2. ACTONEL [Suspect]
     Indication: OSTEOPOROSIS
     Dosage: UNK/UNK/UNK
  3. BONIVA [Suspect]
     Indication: OSTEOPENIA
     Dosage: UNK/UNK/UNK
  4. BONIVA [Suspect]
     Indication: OSTEOPOROSIS
     Dosage: UNK/UNK/UNK
  5. FOSAMAX [Suspect]
     Indication: OSTEOPOROSIS
     Dosage: UNK/UNK/PO
     Route: 048
  6. FOSAMAX [Suspect]
     Indication: OSTEOPENIA
     Dosage: UNK/UNK/PO
     Route: 048

REACTIONS (1)
  - OSTEONECROSIS OF JAW [None]
